FAERS Safety Report 5727484-0 (Version None)
Quarter: 2008Q2

REPORT INFORMATION
  Report Type: 
  Country: None (occurrence: None)
  Receive Date: 20080505
  Receipt Date: 20080425
  Transmission Date: 20081010
  Serious: Yes (Other)
  Sender: FDA-Public Use
  Company Number: KR-ABBOTT-08P-090-0449053-00

PATIENT
  Sex: Male
  Weight: 62 kg

DRUGS (3)
  1. KALETRA [Suspect]
     Indication: HIV TEST POSITIVE
     Route: 048
     Dates: start: 20060316
  2. LAMIVUDINE [Concomitant]
     Indication: HIV TEST POSITIVE
  3. ZIDOVUDINE [Concomitant]
     Indication: HIV TEST POSITIVE

REACTIONS (2)
  - CEREBRAL TOXOPLASMOSIS [None]
  - MENINGITIS CRYPTOCOCCAL [None]
